FAERS Safety Report 6257326-9 (Version None)
Quarter: 2009Q3

REPORT INFORMATION
  Report Type: 
  Country: None (occurrence: None)
  Receive Date: 20090701
  Receipt Date: 20090701
  Transmission Date: 20100115
  Serious: Yes (Hospitalization)
  Sender: FDA-Public Use
  Company Number: None

PATIENT
  Age: 81 Year
  Sex: Male

DRUGS (14)
  1. FUROSEMIDE 40MG [Suspect]
     Indication: HYPERTENSION
     Dosage: 80MG BID PO
     Route: 048
  2. CANDESARTAN 32MG [Suspect]
     Indication: HYPERTENSION
     Dosage: 32MG DAILY PO
     Route: 048
  3. CANDESARTAN 32MG [Suspect]
     Indication: TYPE 2 DIABETES MELLITUS
     Dosage: 32MG DAILY PO
     Route: 048
  4. TOPROL-XL [Concomitant]
  5. CLONIDINE [Concomitant]
  6. ATORVASTATIN CALCIUM [Concomitant]
  7. NEURONTIN [Concomitant]
  8. ISORDIL [Concomitant]
  9. EFFEXOR [Concomitant]
  10. PROSCAR [Concomitant]
  11. OMEPRAZOLE [Concomitant]
  12. SINGULAIR [Concomitant]
  13. UROXATROL [Concomitant]
  14. SODIUM BICARB [Concomitant]

REACTIONS (7)
  - ASTHENIA [None]
  - BLOOD CREATININE INCREASED [None]
  - DIZZINESS [None]
  - FLANK PAIN [None]
  - HYPERKALAEMIA [None]
  - POLYURIA [None]
  - PRESYNCOPE [None]
